FAERS Safety Report 5976627-2 (Version None)
Quarter: 2008Q4

REPORT INFORMATION
  Report Type: 
  Country: None (occurrence: None)
  Receive Date: 20081201
  Receipt Date: 20081201
  Transmission Date: 20090506
  Serious: Yes (Other)
  Sender: FDA-Public Use
  Company Number: None

PATIENT
  Age: 37 Year
  Sex: Female
  Weight: 56.6996 kg

DRUGS (1)
  1. TUSSIONEX [Suspect]
     Indication: BRONCHITIS
     Dosage: 5ML
     Dates: start: 20081107, end: 20081114

REACTIONS (8)
  - COUGH [None]
  - DIZZINESS [None]
  - FEELING ABNORMAL [None]
  - INCORRECT DOSE ADMINISTERED [None]
  - INSOMNIA [None]
  - MEDICATION ERROR [None]
  - SLUGGISHNESS [None]
  - SOMNOLENCE [None]
